FAERS Safety Report 15392326 (Version 2)
Quarter: 2018Q3

REPORT INFORMATION
  Report Type: Spontaneous
  Country: BR (occurrence: BR)
  Receive Date: 20180917
  Receipt Date: 20180928
  Transmission Date: 20181010
  Serious: Yes (Other)
  Sender: FDA-Public Use
  Company Number: BR-SA-2018SA258070

PATIENT
  Age: 12 Year
  Sex: Male
  Weight: 40 kg

DRUGS (6)
  1. HYDROCORTISONE. [Concomitant]
     Active Substance: HYDROCORTISONE
     Dosage: 300 MG, QD
     Route: 042
     Dates: start: 20180907, end: 20180907
  2. RANITIDINE. [Concomitant]
     Active Substance: RANITIDINE
     Dosage: 3 G, QD
     Route: 042
     Dates: start: 20180907
  3. THYMOGLOBULINE [Suspect]
     Active Substance: LAPINE T-LYMPHOCYTE IMMUNE GLOBULIN
     Indication: IMMUNOSUPPRESSION
     Dosage: 125 MG, QD
     Route: 042
     Dates: start: 20180907, end: 20180908
  4. METAMIZOLE SODIUM [Concomitant]
     Active Substance: METAMIZOLE SODIUM
     Dosage: 1000 MG, QD
     Route: 042
     Dates: start: 20180907, end: 20180907
  5. CEFAZOLINE [CEFAZOLIN] [Concomitant]
     Dosage: 10 ML, QD
     Route: 042
     Dates: start: 20180908, end: 20180908
  6. SALINE [SODIUM CHLORIDE] [Concomitant]
     Active Substance: SODIUM CHLORIDE
     Dosage: 500 ML, QD
     Route: 042
     Dates: start: 20180907, end: 20180908

REACTIONS (3)
  - Bradycardia [Recovered/Resolved]
  - Nausea [Recovered/Resolved]
  - Hypotension [Recovered/Resolved]

NARRATIVE: CASE EVENT DATE: 20180907
